FAERS Safety Report 14015508 (Version 1)
Quarter: 2017Q3

REPORT INFORMATION
  Report Type: Spontaneous
  Country: IN (occurrence: IN)
  Receive Date: 20170927
  Receipt Date: 20170927
  Transmission Date: 20171128
  Serious: Yes (Other)
  Sender: FDA-Public Use
  Company Number: IN-ELI_LILLY_AND_COMPANY-IN201709007396

PATIENT
  Age: 22 Year
  Sex: Female

DRUGS (6)
  1. CLONAZEPAM. [Concomitant]
     Active Substance: CLONAZEPAM
     Indication: OBSESSIVE-COMPULSIVE DISORDER
  2. RISPERIDONE. [Interacting]
     Active Substance: RISPERIDONE
     Indication: OBSESSIVE-COMPULSIVE DISORDER
  3. FLUOXETINE HYDROCHLORIDE. [Interacting]
     Active Substance: FLUOXETINE HYDROCHLORIDE
     Indication: OBSESSIVE-COMPULSIVE DISORDER
  4. CLONAZEPAM. [Concomitant]
     Active Substance: CLONAZEPAM
     Indication: SCHIZOPHRENIA
     Dosage: 0.5 MG, UNKNOWN
     Route: 065
     Dates: start: 201209
  5. RISPERIDONE. [Interacting]
     Active Substance: RISPERIDONE
     Indication: SCHIZOPHRENIA
     Dosage: 1 MG, UNKNOWN
     Route: 065
     Dates: start: 201209
  6. FLUOXETINE HYDROCHLORIDE. [Suspect]
     Active Substance: FLUOXETINE HYDROCHLORIDE
     Indication: SCHIZOPHRENIA
     Dosage: 20 MG, UNKNOWN
     Route: 065
     Dates: start: 201209

REACTIONS (12)
  - Musculoskeletal stiffness [Unknown]
  - Cogwheel rigidity [Unknown]
  - Areflexia [Unknown]
  - Reduced facial expression [Unknown]
  - Drug interaction [Unknown]
  - Strabismus [Unknown]
  - Bradykinesia [Unknown]
  - Muscle rigidity [Unknown]
  - Insomnia [Unknown]
  - Extrapyramidal disorder [Unknown]
  - Impaired work ability [Unknown]
  - Tremor [Unknown]

NARRATIVE: CASE EVENT DATE: 201212
